FAERS Safety Report 16941911 (Version 2)
Quarter: 2019Q4

REPORT INFORMATION
  Report Type: Report from Study
  Country: ES (occurrence: ES)
  Receive Date: 20191021
  Receipt Date: 20191206
  Transmission Date: 20200122
  Serious: Yes (Other)
  Sender: FDA-Public Use
  Company Number: ES-INCYTE CORPORATION-2019IN010417

PATIENT

DRUGS (5)
  1. JAKAVI [Suspect]
     Active Substance: RUXOLITINIB
     Indication: POLYCYTHAEMIA VERA
     Dosage: 20 OT
     Route: 065
     Dates: start: 20181030, end: 20181126
  2. JAKAVI [Suspect]
     Active Substance: RUXOLITINIB
     Dosage: 20 OT
     Route: 065
     Dates: start: 20190102, end: 20190213
  3. HYDROXYUREA. [Concomitant]
     Active Substance: HYDROXYUREA
     Indication: POLYCYTHAEMIA VERA
     Route: 065
  4. AMLODIPINO [Concomitant]
     Active Substance: AMLODIPINE BESYLATE
     Indication: HYPERTENSION
     Dosage: UNK
     Route: 065
     Dates: start: 2009
  5. JAKAVI [Suspect]
     Active Substance: RUXOLITINIB
     Dosage: 25 OT
     Route: 065
     Dates: start: 20181127, end: 20190101

REACTIONS (5)
  - Haematoma [Recovered/Resolved]
  - Asthenia [Not Recovered/Not Resolved]
  - Contusion [Recovered/Resolved]
  - Cough [Recovered/Resolved]
  - Respiratory tract infection [Recovered/Resolved]

NARRATIVE: CASE EVENT DATE: 20181127
